FAERS Safety Report 5118398-8 (Version None)
Quarter: 2006Q3

REPORT INFORMATION
  Report Type: 
  Country: None (occurrence: None)
  Receive Date: 20060926
  Receipt Date: 20060913
  Transmission Date: 20061208
  Serious: Yes (Death, Hospitalization)
  Sender: FDA-Public Use
  Company Number: EC200608006156

PATIENT

DRUGS (3)
  1. PEMETREXED(PEMETREXED) VIAL [Suspect]
     Indication: LUNG CANCER METASTATIC
  2. CYANOCOBALAMIN [Concomitant]
  3. FOLIC ACID [Concomitant]

REACTIONS (3)
  - CARDIAC ARREST [None]
  - CARDIOPULMONARY FAILURE [None]
  - PULMONARY HAEMORRHAGE [None]
